FAERS Safety Report 6959344-1 (Version None)
Quarter: 2010Q3

REPORT INFORMATION
  Report Type: 
  Country: None (occurrence: None)
  Receive Date: 20100831
  Receipt Date: 20100831
  Transmission Date: 20110219
  Serious: Yes (Life-Threatening, Disabling, Other)
  Sender: FDA-Public Use
  Company Number: None

PATIENT
  Age: 20 Year
  Sex: Male
  Weight: 58 kg

DRUGS (3)
  1. TACROLIMUS [Suspect]
     Indication: RENAL TRANSPLANT
     Dosage: 4 BID PO
     Route: 048
     Dates: start: 20100801, end: 20100801
  2. TACROLIMUS [Suspect]
     Indication: TRANSPLANT REJECTION
     Dosage: 4 BID PO
     Route: 048
     Dates: start: 20100801, end: 20100801
  3. TACROLIMUS [Suspect]
     Dosage: 7 BID PO
     Route: 048

REACTIONS (2)
  - DRUG EFFECT DECREASED [None]
  - PRODUCT QUALITY ISSUE [None]
